FAERS Safety Report 20361778 (Version 1)
Quarter: 2022Q1

REPORT INFORMATION
  Report Type: Spontaneous
  Country: US (occurrence: US)
  Receive Date: 20220121
  Receipt Date: 20220121
  Transmission Date: 20220424
  Serious: No
  Sender: FDA-Public Use
  Company Number: US-PFIZER INC-202101844353

PATIENT
  Age: 73 Year
  Sex: Male
  Weight: 171 kg

DRUGS (1)
  1. NORVASC [Suspect]
     Active Substance: AMLODIPINE BESYLATE
     Indication: Blood pressure abnormal
     Dosage: 10 MG, 1X/DAY
     Dates: start: 2006

REACTIONS (4)
  - Visual impairment [Not Recovered/Not Resolved]
  - Product taste abnormal [Unknown]
  - Poor quality product administered [Unknown]
  - Suspected counterfeit product [Unknown]

NARRATIVE: CASE EVENT DATE: 20211221
